FAERS Safety Report 11873384 (Version 1)
Quarter: 2015Q4

REPORT INFORMATION
  Report Type: Spontaneous
  Country: GB (occurrence: GB)
  Receive Date: 20151228
  Receipt Date: 20151228
  Transmission Date: 20160305
  Serious: Yes (Life-Threatening, Hospitalization)
  Sender: FDA-Public Use
  Company Number: GB-TEVA-619429ACC

PATIENT
  Age: 82 Year

DRUGS (9)
  1. EZETIMIBE. [Concomitant]
     Active Substance: EZETIMIBE
     Dosage: 10 MILLIGRAM DAILY;
  2. FOLIC ACID. [Concomitant]
     Active Substance: FOLIC ACID
     Dosage: 5 MG, THRICE (SUNDAY, TUESDAY AND THURSDAY) WEEKLY
  3. PARACETAMOL [Concomitant]
     Active Substance: ACETAMINOPHEN
     Dosage: TAKE 1 OR 2 TABLETS FOUR TIMES A DAY WHEN REQUIRED
  4. METHOTREXATE [Suspect]
     Active Substance: METHOTREXATE
     Indication: RHEUMATOID ARTHRITIS
     Dosage: 15 MG (SIX TABLETS) TO BE TAKEN WEEKLY (WED)
  5. OMEPRAZOLE. [Concomitant]
     Active Substance: OMEPRAZOLE
     Dosage: 20 MILLIGRAM DAILY;
  6. SALBUTAMOL [Concomitant]
     Active Substance: ALBUTEROL
     Dosage: 2 PUFFS, 100 MICROGRAMS/DOSE
     Route: 055
  7. CALCICHEW D3 [Concomitant]
     Active Substance: CALCIUM\CHOLECALCIFEROL
     Dosage: 2 DOSAGE FORMS DAILY;
  8. MONOMIL XL [Concomitant]
     Dosage: 30 MILLIGRAM DAILY;
  9. TAMSULOSIN [Concomitant]
     Active Substance: TAMSULOSIN
     Dosage: 400 MICROGRAM DAILY;

REACTIONS (5)
  - Epistaxis [Unknown]
  - Gastrointestinal haemorrhage [Unknown]
  - C-reactive protein increased [Unknown]
  - Pancytopenia [Recovered/Resolved]
  - Neutropenic sepsis [Unknown]
